FAERS Safety Report 5454292-0 (Version None)
Quarter: 2007Q3

REPORT INFORMATION
  Report Type: 
  Country: None (occurrence: None)
  Receive Date: 20070917
  Receipt Date: 20070907
  Transmission Date: 20080115
  Serious: Yes (Other)
  Sender: FDA-Public Use
  Company Number: CA-PFIZER INC-2007067237

PATIENT
  Sex: Male
  Weight: 73 kg

DRUGS (2)
  1. LIPITOR [Suspect]
     Indication: BLOOD CHOLESTEROL INCREASED
     Route: 048
  2. ALTACE [Suspect]
     Route: 048

REACTIONS (10)
  - AORTIC ARTERIOSCLEROSIS [None]
  - DIZZINESS [None]
  - HEPATIC CYST [None]
  - HYPERHIDROSIS [None]
  - HYPERTENSION [None]
  - NERVOUSNESS [None]
  - PAIN IN EXTREMITY [None]
  - PALPITATIONS [None]
  - RENAL ANEURYSM [None]
  - STOMACH DISCOMFORT [None]
